FAERS Safety Report 9735709 (Version 3)
Quarter: 2014Q1

REPORT INFORMATION
  Report Type: Report from Study
  Country: NL (occurrence: NL)
  Receive Date: 20131206
  Receipt Date: 20140224
  Transmission Date: 20141002
  Serious: Yes (Hospitalization)
  Sender: FDA-Public Use
  Company Number: PHHY2013NL142127

PATIENT
  Age: 62 Year
  Sex: Male

DRUGS (5)
  1. ZOMETA [Suspect]
     Indication: PROSTATE CANCER METASTATIC
     Dosage: 4 MG/ 100ML ONCE EVERY 4 WEELS
     Route: 042
  2. ZOMETA [Suspect]
     Dosage: 4 MG/ 100ML ONCE EVERY 4 WEEKS
     Route: 042
     Dates: start: 20130222
  3. ZOMETA [Suspect]
     Dosage: 4 MG/ 100ML ONCE EVERY 4 WEEKS
     Route: 042
     Dates: start: 20131106
  4. ZOMETA [Suspect]
     Dosage: 4 MG/ 100ML ONCE EVERY 4 WEEKS
     Route: 042
     Dates: start: 20131204
  5. ZOMETA [Suspect]
     Dosage: 4 MG/ 100ML ONCE EVERY 4 WEEKS
     Route: 042
     Dates: start: 20131230, end: 20131230

REACTIONS (6)
  - General physical health deterioration [Not Recovered/Not Resolved]
  - Spinal cord injury [Unknown]
  - Malaise [Not Recovered/Not Resolved]
  - Weight decreased [Not Recovered/Not Resolved]
  - Decreased appetite [Not Recovered/Not Resolved]
  - Fatigue [Not Recovered/Not Resolved]
